FAERS Safety Report 15332348 (Version 3)
Quarter: 2018Q4

REPORT INFORMATION
  Report Type: Spontaneous
  Country: US (occurrence: US)
  Receive Date: 20180829
  Receipt Date: 20181220
  Transmission Date: 20190204
  Serious: Yes (Other)
  Sender: FDA-Public Use
  Company Number: US-INCYTE CORPORATION-2018IN008459

PATIENT

DRUGS (3)
  1. JAKAFI [Suspect]
     Active Substance: RUXOLITINIB
     Indication: ESSENTIAL THROMBOCYTHAEMIA
     Dosage: 15 MG, BID
     Route: 048
     Dates: start: 20180803
  2. JAKAFI [Suspect]
     Active Substance: RUXOLITINIB
     Indication: SPLENOMEGALY
     Dosage: 15 MG, BID
     Route: 048
  3. JAKAFI [Suspect]
     Active Substance: RUXOLITINIB
     Indication: THROMBOCYTOPENIA
     Dosage: 15 MG, BID
     Route: 048

REACTIONS (13)
  - Fatigue [Unknown]
  - Myelofibrosis [Unknown]
  - Asthenia [Unknown]
  - Contusion [Unknown]
  - Stomatitis [Unknown]
  - Dizziness [Unknown]
  - Off label use [Unknown]
  - Blood pressure decreased [Unknown]
  - Skin disorder [Unknown]
  - Red blood cell count abnormal [Unknown]
  - Platelet count decreased [Unknown]
  - Erythropoiesis abnormal [Unknown]
  - Abdominal discomfort [Unknown]
